FAERS Safety Report 8469356-7 (Version None)
Quarter: 2012Q2

REPORT INFORMATION
  Report Type: 
  Country: None (occurrence: None)
  Receive Date: 20120621
  Receipt Date: 20120621
  Transmission Date: 20120825
  Serious: No
  Sender: FDA-Public Use
  Company Number: None

PATIENT
  Sex: Female
  Weight: 83.9154 kg

DRUGS (1)
  1. LEVOTHYROXINE SODIUM [Suspect]

REACTIONS (1)
  - ALOPECIA [None]
